FAERS Safety Report 6491540-2 (Version None)
Quarter: 2009Q4

REPORT INFORMATION
  Report Type: 
  Country: None (occurrence: None)
  Receive Date: 20091211
  Receipt Date: 20091202
  Transmission Date: 20100525
  Serious: Yes (Hospitalization)
  Sender: FDA-Public Use
  Company Number: US-ABBOTT-09P-163-0611744-00

PATIENT
  Sex: Male
  Weight: 18.614 kg

DRUGS (3)
  1. E.E.S. GRANULES [Suspect]
     Indication: ANTIFUNGAL PROPHYLAXIS
     Route: 050
     Dates: start: 20090914, end: 20091101
  2. TPN [Concomitant]
     Indication: CYTOGENETIC ABNORMALITY
     Route: 013
  3. LOVENOX [Concomitant]
     Indication: DRUG USE FOR UNKNOWN INDICATION

REACTIONS (8)
  - ABDOMINAL PAIN [None]
  - ABDOMINAL RIGIDITY [None]
  - CRYING [None]
  - FEEDING TUBE COMPLICATION [None]
  - HAEMOGLOBIN DECREASED [None]
  - MALABSORPTION [None]
  - PLATELET COUNT DECREASED [None]
  - PYREXIA [None]
